FAERS Safety Report 12268537 (Version 4)
Quarter: 2017Q3

REPORT INFORMATION
  Report Type: Report from Study
  Country: None (occurrence: CA)
  Receive Date: 20160414
  Receipt Date: 20170711
  Transmission Date: 20171127
  Serious: Yes (Other)
  Sender: FDA-Public Use
  Company Number: CA-ABBVIE-16K-028-1604761-00

PATIENT
  Age: 69 Year
  Sex: Male

DRUGS (2)
  1. COVERSYL [Concomitant]
     Active Substance: PERINDOPRIL
     Indication: HYPERTENSION
     Route: 048
  2. HUMIRA [Suspect]
     Active Substance: ADALIMUMAB
     Indication: CROHN^S DISEASE
     Route: 058
     Dates: start: 20151210

REACTIONS (3)
  - Retinal detachment [Unknown]
  - Feeling abnormal [Unknown]
  - Retinal detachment [Recovered/Resolved]

NARRATIVE: CASE EVENT DATE: 20160301
